FAERS Safety Report 5761031-2 (Version None)
Quarter: 2008Q2

REPORT INFORMATION
  Report Type: 
  Country: None (occurrence: None)
  Receive Date: 20080606
  Receipt Date: 20080602
  Transmission Date: 20081010
  Serious: Yes (Death, Other)
  Sender: FDA-Public Use
  Company Number: CA-PURDUE-CAN_2008_0000571

PATIENT
  Age: 46 Year
  Sex: Male

DRUGS (8)
  1. MORPHINE [Suspect]
     Indication: DRUG USE FOR UNKNOWN INDICATION
     Route: 048
  2. COCAINE [Suspect]
     Indication: DRUG USE FOR UNKNOWN INDICATION
     Route: 048
  3. ACETAMINOPHEN [Suspect]
     Indication: DRUG USE FOR UNKNOWN INDICATION
     Route: 048
  4. DEXTROMETHORPHAN HYDROBROMIDE [Suspect]
     Indication: DRUG USE FOR UNKNOWN INDICATION
     Route: 048
  5. CODEINE SUL TAB [Suspect]
     Indication: DRUG USE FOR UNKNOWN INDICATION
     Route: 048
  6. LIDOCAINE [Suspect]
     Indication: DRUG USE FOR UNKNOWN INDICATION
     Route: 065
  7. ATROPINE [Suspect]
     Indication: DRUG USE FOR UNKNOWN INDICATION
     Route: 065
  8. BENZOYLEGONINE [Suspect]
     Indication: DRUG USE FOR UNKNOWN INDICATION

REACTIONS (3)
  - DRUG TOXICITY [None]
  - ROAD TRAFFIC ACCIDENT [None]
  - SUBSTANCE ABUSE [None]
